FAERS Safety Report 9160294 (Version 1)
Quarter: 2013Q1

REPORT INFORMATION
  Report Type: Spontaneous
  Country: CA (occurrence: CA)
  Receive Date: 20130313
  Receipt Date: 20130313
  Transmission Date: 20140127
  Serious: Yes (Other)
  Sender: FDA-Public Use
  Company Number: CA-PFIZER INC-2013080290

PATIENT
  Sex: Female

DRUGS (1)
  1. LYRICA [Suspect]
     Indication: FIBROMYALGIA
     Dosage: 50 MG, UNK
     Dates: start: 2008

REACTIONS (22)
  - General physical condition abnormal [Recovering/Resolving]
  - Angina pectoris [Recovering/Resolving]
  - Migraine with aura [Recovering/Resolving]
  - Confusional state [Recovering/Resolving]
  - Visual impairment [Recovering/Resolving]
  - Impaired driving ability [Recovering/Resolving]
  - Night blindness [Recovering/Resolving]
  - Disorientation [Recovering/Resolving]
  - Hyperacusis [Recovering/Resolving]
  - Weight increased [Recovering/Resolving]
  - Food craving [Recovering/Resolving]
  - Anxiety [Recovering/Resolving]
  - Sciatica [Recovering/Resolving]
  - Arthralgia [Recovering/Resolving]
  - Spinal pain [Recovering/Resolving]
  - Carpal tunnel syndrome [Recovering/Resolving]
  - Gait disturbance [Recovering/Resolving]
  - Migraine [Recovering/Resolving]
  - Insomnia [Recovering/Resolving]
  - Feeling drunk [Recovering/Resolving]
  - Confusional state [Recovering/Resolving]
  - Pain in extremity [Recovering/Resolving]
